FAERS Safety Report 5805729-6 (Version None)
Quarter: 2008Q3

REPORT INFORMATION
  Report Type: 
  Country: None (occurrence: None)
  Receive Date: 20080708
  Receipt Date: 20080708
  Transmission Date: 20090109
  Serious: Yes (Hospitalization)
  Sender: FDA-Public Use
  Company Number: None

PATIENT
  Age: 48 Year
  Sex: Female
  Weight: 133 kg

DRUGS (1)
  1. LITHIUM CARBONATE [Suspect]
     Indication: BIPOLAR DISORDER
     Dosage: THREE TABLETS ONCE DAILY  ONCE DAILY PO
     Route: 048

REACTIONS (5)
  - HYPOPHAGIA [None]
  - MUSCLE TWITCHING [None]
  - PNEUMONIA [None]
  - RENAL FAILURE ACUTE [None]
  - SOMNOLENCE [None]
